FAERS Safety Report 6886035-8 (Version None)
Quarter: 2010Q3

REPORT INFORMATION
  Report Type: 
  Country: None (occurrence: None)
  Receive Date: 20100729
  Receipt Date: 20080430
  Transmission Date: 20110219
  Serious: Yes (Other)
  Sender: FDA-Public Use
  Company Number: US-PFIZER INC-2008038106

PATIENT
  Age: 29 Year
  Sex: Male
  Weight: 79 kg

DRUGS (1)
  1. CELEBREX [Suspect]
     Indication: MYALGIA
     Dates: start: 20070401, end: 20080401

REACTIONS (4)
  - CHEST PAIN [None]
  - DYSPNOEA [None]
  - HEART RATE INCREASED [None]
  - PAIN IN EXTREMITY [None]
